FAERS Safety Report 7344849-4 (Version None)
Quarter: 2011Q1

REPORT INFORMATION
  Report Type: 
  Country: None (occurrence: None)
  Receive Date: 20110310
  Receipt Date: 20110307
  Transmission Date: 20110831
  Serious: Yes (Other)
  Sender: FDA-Public Use
  Company Number: US-PFIZER INC-2011050638

PATIENT
  Age: 53 Year
  Sex: Female

DRUGS (2)
  1. LYRICA [Suspect]
     Dosage: 25MG
  2. LYRICA [Suspect]
     Dosage: 50 MG, 2X/DAY

REACTIONS (1)
  - ACTIVITIES OF DAILY LIVING IMPAIRED [None]
